FAERS Safety Report 25378422 (Version 1)
Quarter: 2025Q2

REPORT INFORMATION
  Report Type: Other
  Country: FR (occurrence: FR)
  Receive Date: 20250530
  Receipt Date: 20250530
  Transmission Date: 20250717
  Serious: Yes (Other)
  Sender: ITALFARMACO SPA
  Company Number: FR-ITALFARMACO SPA-2177794

PATIENT
  Age: 7 Year
  Sex: Male
  Weight: 28 kg

DRUGS (2)
  1. DUVYZAT [Suspect]
     Active Substance: GIVINOSTAT
     Indication: Duchenne muscular dystrophy
     Dates: start: 20250419
  2. DEFLAZACORT [Concomitant]
     Active Substance: DEFLAZACORT

REACTIONS (2)
  - Diarrhoea [Recovered/Resolved]
  - Thrombocytopenia [Recovered/Resolved]

NARRATIVE: CASE EVENT DATE: 20250421
